FAERS Safety Report 21699917 (Version 2)
Quarter: 2022Q4

REPORT INFORMATION
  Report Type: Report from Study
  Country: KR (occurrence: KR)
  Receive Date: 20221208
  Receipt Date: 20221219
  Transmission Date: 20230112
  Serious: Yes (Death)
  Sender: FDA-Public Use
  Company Number: KR-TEVA-2022-KR-2833332

PATIENT
  Age: 68 Year
  Sex: Female

DRUGS (9)
  1. ETOPOSIDE [Suspect]
     Active Substance: ETOPOSIDE
     Indication: Haemophagocytic lymphohistiocytosis
     Dosage: FIVE DAYS AFTER TOCILIZUMAB, SHE RECEIVED RESCUE REGIMEN WITH HLH-2004 REGIMEN INCLUDING DEXAMETH...
     Route: 065
  2. TOCILIZUMAB [Suspect]
     Active Substance: TOCILIZUMAB
     Indication: Haemophagocytic lymphohistiocytosis
     Dosage: ONCE
     Route: 065
  3. DEXAMETHASONE [Suspect]
     Active Substance: DEXAMETHASONE
     Indication: Haemophagocytic lymphohistiocytosis
     Dosage: 20 MILLIGRAM DAILY;
     Route: 065
  4. DEXAMETHASONE [Suspect]
     Active Substance: DEXAMETHASONE
     Indication: Haemophagocytic lymphohistiocytosis
     Dosage: FIVE DAYS AFTER TOCILIZUMAB, SHE RECEIVED RESCUE REGIMEN WITH HLH-2004 REGIMEN INCLUDING DEXAMETH...
     Route: 065
  5. CYCLOSPORINE [Suspect]
     Active Substance: CYCLOSPORINE
     Indication: Haemophagocytic lymphohistiocytosis
     Dosage: FIVE DAYS AFTER TOCILIZUMAB, SHE RECEIVED RESCUE REGIMEN WITH HLH-2004 REGIMEN INCLUDING DEXAMETH...
     Route: 065
  6. METHOTREXATE [Suspect]
     Active Substance: METHOTREXATE
     Indication: Haemophagocytic lymphohistiocytosis
     Dosage: FIVE DAYS AFTER TOCILIZUMAB, SHE RECEIVED RESCUE REGIMEN WITH HLH-2004 REGIMEN INCLUDING DEXAMETH...
     Route: 065
  7. PREDNISOLONE [Suspect]
     Active Substance: PREDNISOLONE
     Indication: Haemophagocytic lymphohistiocytosis
     Dosage: FIVE DAYS AFTER TOCILIZUMAB, SHE RECEIVED RESCUE REGIMEN WITH HLH-2004 REGIMEN INCLUDING DEXAMETH...
     Route: 065
  8. COTRIMOXAZOLE [Suspect]
     Active Substance: SULFAMETHOXAZOLE\TRIMETHOPRIM
     Indication: Haemophagocytic lymphohistiocytosis
     Dosage: FIVE DAYS AFTER TOCILIZUMAB, SHE RECEIVED RESCUE REGIMEN WITH HLH-2004 REGIMEN INCLUDING DEXAMETH...
     Route: 065
  9. PRIVIGEN [Suspect]
     Active Substance: HUMAN IMMUNOGLOBULIN G
     Indication: Haemophagocytic lymphohistiocytosis
     Dosage: FIVE DAYS AFTER TOCILIZUMAB, SHE RECEIVED RESCUE REGIMEN WITH HLH-2004 REGIMEN INCLUDING DEXAMETH...
     Route: 042

REACTIONS (2)
  - Septic shock [Fatal]
  - Drug ineffective [Fatal]
